FAERS Safety Report 4921171-4 (Version None)
Quarter: 2006Q1

REPORT INFORMATION
  Report Type: 
  Country: None (occurrence: None)
  Receive Date: 20060217
  Receipt Date: 20060202
  Transmission Date: 20060701
  Serious: Yes (Hospitalization)
  Sender: FDA-Public Use
  Company Number: 222023

PATIENT
  Age: 48 Year
  Sex: Female

DRUGS (1)
  1. HERCEPTIN [Suspect]
     Indication: BREAST CANCER FEMALE
     Dosage: O3W
     Dates: start: 20060111

REACTIONS (4)
  - CARDIAC FAILURE [None]
  - ENDOCARDITIS [None]
  - METASTASES TO LUNG [None]
  - PAPILLARY MUSCLE RUPTURE [None]
